FAERS Safety Report 4644734-2 (Version None)
Quarter: 2005Q2

REPORT INFORMATION
  Report Type: 
  Country: None (occurrence: None)
  Receive Date: 20050425
  Receipt Date: 20050425
  Transmission Date: 20051028
  Serious: Yes (Other)
  Sender: FDA-Public Use
  Company Number: None

PATIENT
  Sex: Male
  Weight: 79.3795 kg

DRUGS (3)
  1. PENICILLIN [Suspect]
     Indication: INFLAMMATION
     Dosage: 500 MG Q 6 H  PO
     Route: 048
     Dates: start: 20050314, end: 20050314
  2. PENICILLIN [Suspect]
     Indication: TOOTHACHE
     Dosage: 500 MG Q 6 H  PO
     Route: 048
     Dates: start: 20050314, end: 20050314
  3. MOTRIN [Suspect]
     Dosage: 800 MG Q 8 H  PO
     Route: 048
     Dates: start: 20050314, end: 20050314

REACTIONS (1)
  - DRUG HYPERSENSITIVITY [None]
